FAERS Safety Report 23002358 (Version 2)
Quarter: 2023Q4

REPORT INFORMATION
  Report Type: Spontaneous
  Country: DE (occurrence: DE)
  Receive Date: 20230928
  Receipt Date: 20231101
  Transmission Date: 20240110
  Serious: Yes (Other)
  Sender: FDA-Public Use
  Company Number: DE-BRISTOL-MYERS SQUIBB COMPANY-2023-134070

PATIENT
  Sex: Female

DRUGS (4)
  1. OPDIVO [Suspect]
     Active Substance: NIVOLUMAB
     Indication: Metastatic malignant melanoma
     Dates: start: 202306
  2. OPDIVO [Suspect]
     Active Substance: NIVOLUMAB
     Dates: start: 202307
  3. IPILIMUMAB [Suspect]
     Active Substance: IPILIMUMAB
     Indication: Metastatic malignant melanoma
     Dates: start: 202306
  4. IPILIMUMAB [Suspect]
     Active Substance: IPILIMUMAB
     Dates: start: 202307

REACTIONS (9)
  - Hypophysitis [Recovering/Resolving]
  - Post procedural haemorrhage [Unknown]
  - Eczema [Not Recovered/Not Resolved]
  - Pyrexia [Not Recovered/Not Resolved]
  - Lymphadenopathy [Not Recovered/Not Resolved]
  - Hydrocephalus [Unknown]
  - Malignant neoplasm progression [Unknown]
  - Leukopenia [Not Recovered/Not Resolved]
  - Neutropenia [Unknown]

NARRATIVE: CASE EVENT DATE: 20230601
